FAERS Safety Report 22211883 (Version 10)
Quarter: 2024Q4

REPORT INFORMATION
  Report Type: Spontaneous
  Country: US (occurrence: US)
  Receive Date: 20230414
  Receipt Date: 20241225
  Transmission Date: 20250115
  Serious: Yes (Other)
  Sender: PFIZER
  Company Number: US-PFIZER INC-PV202300007073

PATIENT
  Age: 69 Year
  Sex: Female
  Weight: 78.02 kg

DRUGS (5)
  1. INLYTA [Suspect]
     Active Substance: AXITINIB
     Indication: Metastatic renal cell carcinoma
     Dosage: 3 MG, DAILY (TAKE 3 TABLETS (3 MG) BY MOUTH DAILY)
     Route: 048
  2. INLYTA [Suspect]
     Active Substance: AXITINIB
     Dosage: 1 MG
  3. INLYTA [Suspect]
     Active Substance: AXITINIB
     Dosage: 5 MG
  4. INLYTA [Suspect]
     Active Substance: AXITINIB
     Dosage: UNK, CYCLIC (TAKE A WEEK OFF BEFORE STARTING HER MEDICATION AGAIN)
  5. INLYTA [Suspect]
     Active Substance: AXITINIB
     Dosage: 3 WEEKS ON, 1 WEEK OFF
     Route: 048

REACTIONS (2)
  - Near death experience [Unknown]
  - Off label use [Unknown]
